FAERS Safety Report 10020947 (Version 1)
Quarter: 2014Q1

REPORT INFORMATION
  Report Type: Spontaneous
  Country: JP (occurrence: JP)
  Receive Date: 20140319
  Receipt Date: 20140319
  Transmission Date: 20141002
  Serious: Yes (Other)
  Sender: FDA-Public Use
  Company Number: JP-JNJFOC-20140309691

PATIENT
  Age: 73 Year
  Sex: Male

DRUGS (2)
  1. TRAMCET [Suspect]
     Indication: PAIN
     Route: 048
  2. LYRICA [Concomitant]
     Indication: PAIN MANAGEMENT
     Route: 048

REACTIONS (2)
  - Delirium [Unknown]
  - Dementia [Unknown]
